FAERS Safety Report 12010229 (Version 1)
Quarter: 2016Q1

REPORT INFORMATION
  Report Type: Spontaneous
  Country: US (occurrence: None)
  Receive Date: 20160204
  Receipt Date: 20160204
  Transmission Date: 20160526
  Serious: No
  Sender: FDA-Public Use
  Company Number: None

PATIENT
  Age: 57 Year
  Sex: Female
  Weight: 49.44 kg

DRUGS (5)
  1. PROBIOTIC [Concomitant]
     Active Substance: PROBIOTICS NOS
  2. MINIVELLE [Suspect]
     Active Substance: ESTRADIOL
     Indication: HORMONE REPLACEMENT THERAPY
     Dosage: 1 PATCH TWICE WEEKLY APPLIED AS MEDICATED PATCH TO SKIN
     Dates: start: 20160120, end: 20160120
  3. VITAMINS [Concomitant]
     Active Substance: VITAMINS
  4. ASACOL [Concomitant]
     Active Substance: MESALAMINE
  5. ACIPHEX [Concomitant]
     Active Substance: RABEPRAZOLE SODIUM

REACTIONS (2)
  - Product adhesion issue [None]
  - Hypersensitivity [None]

NARRATIVE: CASE EVENT DATE: 20160120
